FAERS Safety Report 25486526 (Version 1)
Quarter: 2025Q2

REPORT INFORMATION
  Report Type: Spontaneous
  Country: US (occurrence: US)
  Receive Date: 20250627
  Receipt Date: 20250627
  Transmission Date: 20250717
  Serious: No
  Sender: ABBVIE
  Company Number: US-ABBVIE-6344213

PATIENT
  Age: 27 Year
  Sex: Female

DRUGS (6)
  1. LILETTA [Suspect]
     Active Substance: LEVONORGESTREL
     Indication: Product used for unknown indication
     Route: 015
     Dates: start: 20250311, end: 20250616
  2. BETAMETHASONE VALERATE [Concomitant]
     Active Substance: BETAMETHASONE VALERATE
     Indication: Product used for unknown indication
     Dosage: OINMENT 0.1%
     Route: 061
     Dates: start: 20250404
  3. BACTROBAN [Concomitant]
     Active Substance: MUPIROCIN CALCIUM
     Indication: Product used for unknown indication
     Dosage: BACTROBAN 2% OINTMENT?APPLY ON BREAST?NIPPLE OINTMENT
     Route: 061
     Dates: start: 20250404
  4. Prenatal 1+1 [Concomitant]
     Indication: Product used for unknown indication
     Dosage: PRENATAL 1+1 TAB
     Route: 048
     Dates: start: 20250331
  5. ZOLOFT [Concomitant]
     Active Substance: SERTRALINE HYDROCHLORIDE
     Indication: Product used for unknown indication
     Route: 048
     Dates: start: 20250411
  6. BACTRIM DS [Concomitant]
     Active Substance: SULFAMETHOXAZOLE\TRIMETHOPRIM
     Indication: Product used for unknown indication
     Dosage: FORM STRENGTH- 800 MG OR 160 MG
     Route: 048
     Dates: start: 20250522

REACTIONS (2)
  - Intermenstrual bleeding [Unknown]
  - Device expulsion [Unknown]

NARRATIVE: CASE EVENT DATE: 20250101
